FAERS Safety Report 5828196-5 (Version None)
Quarter: 2008Q3

REPORT INFORMATION
  Report Type: 
  Country: None (occurrence: None)
  Receive Date: 20080729
  Receipt Date: 20080721
  Transmission Date: 20090109
  Serious: Yes (Death, Hospitalization)
  Sender: FDA-Public Use
  Company Number: 163-21880-08041370

PATIENT
  Age: 75 Year
  Sex: Female

DRUGS (8)
  1. REVLIMID [Suspect]
     Indication: MYELODYSPLASTIC SYNDROME
     Dosage: 5 MG, 1 IN 1 D, ORAL, 2.5 MG, 1 IN 2 D, ORAL
     Route: 048
     Dates: start: 20071201, end: 20080201
  2. REVLIMID [Suspect]
     Indication: MYELODYSPLASTIC SYNDROME
     Dosage: 5 MG, 1 IN 1 D, ORAL, 2.5 MG, 1 IN 2 D, ORAL
     Route: 048
     Dates: start: 20080222, end: 20080320
  3. LEVAQUIN [Concomitant]
  4. AMBIEN CR [Concomitant]
  5. REGULAR INSULIN [Concomitant]
  6. DIFLUCAN [Concomitant]
  7. ZOVIRAX [Concomitant]
  8. ZOLOFT [Concomitant]

REACTIONS (5)
  - ATELECTASIS [None]
  - LUNG INFILTRATION [None]
  - OESOPHAGITIS [None]
  - PNEUMONITIS [None]
  - RESPIRATORY FAILURE [None]
